FAERS Safety Report 9166791 (Version 1)
Quarter: 2012Q4

REPORT INFORMATION
  Report Type: Report from Study
  Country: CA (occurrence: CA)
  Receive Date: 20121119
  Receipt Date: 20121119
  Transmission Date: 20130627
  Serious: Yes (Other)
  Sender: FDA-Public Use
  Company Number: CA-RB-019258-10

PATIENT
  Sex: Female

DRUGS (5)
  1. SUBUTEX [Suspect]
     Indication: DRUG DEPENDENCE
     Route: 060
     Dates: start: 201102, end: 201103
  2. SUBUTEX [Suspect]
     Route: 065
     Dates: start: 201103, end: 201109
  3. SUBOXONE TABLET [Suspect]
     Indication: DRUG DEPENDENCE
     Dosage: Dosing details unknown
     Route: 060
     Dates: end: 2010
  4. INSULIN HUMALOG [Concomitant]
     Indication: DIABETES MELLITUS
     Dosage: Illegible
     Route: 065
     Dates: start: 201012
  5. INSULIN LEVEMIR [Concomitant]
     Indication: DIABETES MELLITUS
     Dosage: Illegible
     Route: 065
     Dates: start: 201012

REACTIONS (2)
  - Premature separation of placenta [Recovered/Resolved]
  - Exposure during pregnancy [Recovered/Resolved]
